FAERS Safety Report 15185796 (Version 3)
Quarter: 2018Q3

REPORT INFORMATION
  Report Type: Spontaneous
  Country: DE (occurrence: DE)
  Receive Date: 20180723
  Receipt Date: 20180828
  Transmission Date: 20181010
  Serious: Yes (Hospitalization, Other)
  Sender: FDA-Public Use
  Company Number: DE-009507513-1807DEU007493

PATIENT
  Age: 29 Year
  Sex: Male

DRUGS (14)
  1. RISPERIDONE. [Suspect]
     Active Substance: RISPERIDONE
     Indication: MENTAL DISORDER
     Dosage: 0.5?1 MG/D (DOSAGE FORM: UNSPECIFIED)
     Route: 048
     Dates: start: 20170412, end: 20170419
  2. PIPAMPERONE [Suspect]
     Active Substance: PIPAMPERONE
     Dosage: 40 MG, QD (DOSAGE FORM: UNSPECIFIED)
     Route: 048
     Dates: start: 20170519
  3. RISPERIDONE. [Suspect]
     Active Substance: RISPERIDONE
     Indication: DRUG DEPENDENCE
     Dosage: 1 MG, QD (DOSAGE FORM: UNSPECIFIED)
     Route: 048
     Dates: start: 20170420, end: 20170423
  4. RISPERIDONE. [Suspect]
     Active Substance: RISPERIDONE
     Indication: PRODUCT USED FOR UNKNOWN INDICATION
     Dosage: 3?4 MG/D (DOSAGE FORM: UNSPECIFIED)
     Route: 048
     Dates: start: 20170424, end: 20170425
  5. MIRTAZAPINE. [Suspect]
     Active Substance: MIRTAZAPINE
     Indication: PRODUCT USED FOR UNKNOWN INDICATION
     Dosage: 15 MG, QD (DOSAGE FORM: UNKNOWN)
     Route: 048
     Dates: start: 20170609, end: 20170611
  6. PIPAMPERONE [Suspect]
     Active Substance: PIPAMPERONE
     Indication: PRODUCT USED FOR UNKNOWN INDICATION
     Dosage: 60 MG, QD (DOSAGE FORM: UNSPECIFIED)
     Route: 048
     Dates: start: 20170518
  7. PIPAMPERONE [Suspect]
     Active Substance: PIPAMPERONE
     Dosage: 100 MG, QD (DOSAGE FORM: UNSPECIFIED)
     Route: 048
     Dates: start: 20170513, end: 20170514
  8. LORAZEPAM. [Concomitant]
     Active Substance: LORAZEPAM
     Dosage: 0.5 ? 3 MG/D (DOSAGE FORM: UNSPECIFIED)
     Route: 048
     Dates: start: 20170424, end: 20170604
  9. PIPAMPERONE [Suspect]
     Active Substance: PIPAMPERONE
     Dosage: 80 MG, QD (DOSAGE FORM: UNSPECIFIED)
     Route: 048
     Dates: start: 20170515, end: 20170517
  10. PIPAMPERONE [Suspect]
     Active Substance: PIPAMPERONE
     Dosage: 120 MG, QD (DOSAGE FORM: UNSPECIFIED)
     Route: 048
     Dates: start: 20170503, end: 20170512
  11. MIRTAZAPINE. [Suspect]
     Active Substance: MIRTAZAPINE
     Dosage: 45 MG, QD (DOSAGE FORM: UNKNOWN)
     Route: 048
     Dates: start: 20170515, end: 20170517
  12. MIRTAZAPINE. [Suspect]
     Active Substance: MIRTAZAPINE
     Dosage: 30 MG, QD (DOSAGE FORM: UNKNOWN)
     Route: 048
     Dates: start: 20170518, end: 20170608
  13. RISPERIDONE. [Suspect]
     Active Substance: RISPERIDONE
     Indication: ABNORMAL BEHAVIOUR
     Dosage: 6 MG, QD (DOSAGE FORM: UNSPECIFIED)
     Route: 048
     Dates: start: 20170426
  14. MIRTAZAPINE. [Suspect]
     Active Substance: MIRTAZAPINE
     Dosage: 30 MG, QD (DOSAGE FORM: UNKNOWN)
     Route: 048
     Dates: start: 20170331, end: 20170514

REACTIONS (4)
  - Product use in unapproved indication [Unknown]
  - Off label use [Unknown]
  - Hepatic enzyme increased [Recovered/Resolved]
  - Liver function test increased [Recovered/Resolved]

NARRATIVE: CASE EVENT DATE: 20170412
